FAERS Safety Report 9757883 (Version 1)
Quarter: 2013Q4

REPORT INFORMATION
  Report Type: Spontaneous
  Country: NL (occurrence: NL)
  Receive Date: 20131216
  Receipt Date: 20131216
  Transmission Date: 20140711
  Serious: Yes (Hospitalization)
  Sender: FDA-Public Use
  Company Number: NL-JNJFOC-20131205775

PATIENT
  Age: 54 Year
  Sex: Female
  Weight: 75 kg

DRUGS (12)
  1. FENTANYL TRANSDERMAL SYSTEM [Suspect]
     Indication: PAIN
     Route: 062
     Dates: end: 2013
  2. VELCADE [Suspect]
     Indication: PLASMA CELL MYELOMA
     Dosage: 2.5 MG
     Route: 042
     Dates: start: 20131011, end: 20131021
  3. CYCLOPHOSPHAMIDE [Suspect]
     Indication: PLASMA CELL MYELOMA
     Dosage: 960 MG
     Route: 042
     Dates: start: 20131011, end: 20131021
  4. DEXAMETHASONE [Suspect]
     Indication: PLASMA CELL MYELOMA
     Route: 048
     Dates: start: 20131010, end: 20131022
  5. PAROXETINE [Concomitant]
     Route: 065
  6. PARACETAMOL [Concomitant]
     Route: 065
  7. DICLOFENAC [Concomitant]
     Route: 065
  8. MOVICOLON [Concomitant]
     Route: 065
  9. FLUCONAZOL [Concomitant]
     Route: 065
  10. ZELITREX [Concomitant]
     Route: 065
  11. ESOMEPRAZOL [Concomitant]
     Route: 065
  12. COTRIMOXAZOL [Concomitant]
     Route: 065

REACTIONS (2)
  - Somnolence [Recovered/Resolved]
  - Mental disorder [Unknown]
